FAERS Safety Report 19793258 (Version 1)
Quarter: 2021Q3

REPORT INFORMATION
  Report Type: Spontaneous
  Country: BR (occurrence: BR)
  Receive Date: 20210906
  Receipt Date: 20210906
  Transmission Date: 20211014
  Serious: Yes (Other)
  Sender: FDA-Public Use
  Company Number: NVSC2021BR166061

PATIENT
  Sex: Male

DRUGS (4)
  1. NEVANAC [Suspect]
     Active Substance: NEPAFENAC
     Indication: PRODUCT USED FOR UNKNOWN INDICATION
     Dosage: UNK
     Route: 065
     Dates: start: 2007
  2. NEVANAC [Suspect]
     Active Substance: NEPAFENAC
     Dosage: 5 ML
     Route: 065
     Dates: start: 20210813
  3. NEVANAC [Suspect]
     Active Substance: NEPAFENAC
     Dosage: UNK
     Route: 065
  4. NEVANAC [Suspect]
     Active Substance: NEPAFENAC
     Dosage: UNK
     Route: 065

REACTIONS (5)
  - Drug ineffective [Unknown]
  - Condition aggravated [Unknown]
  - Product residue present [Not Recovered/Not Resolved]
  - Cataract [Unknown]
  - Blepharitis [Unknown]

NARRATIVE: CASE EVENT DATE: 2009
